FAERS Safety Report 7007227-3 (Version None)
Quarter: 2010Q3

REPORT INFORMATION
  Report Type: 
  Country: None (occurrence: None)
  Receive Date: 20100916
  Receipt Date: 20100910
  Transmission Date: 20110219
  Serious: Yes (Other)
  Sender: FDA-Public Use
  Company Number: 2010SP040121

PATIENT
  Age: 42 Year
  Sex: Female

DRUGS (6)
  1. SAPHRIS [Suspect]
     Indication: PRODUCT USED FOR UNKNOWN INDICATION
     Dosage: 5 MG;BID;SL, 10 MG;BID;SL
     Route: 060
     Dates: start: 20100501, end: 20100818
  2. SAPHRIS [Suspect]
     Indication: PRODUCT USED FOR UNKNOWN INDICATION
     Dosage: 5 MG;BID;SL, 10 MG;BID;SL
     Route: 060
     Dates: start: 20100719
  3. BENZODIAZEPINE [Concomitant]
  4. PROZAC [Concomitant]
  5. PHENERGAN [Concomitant]
  6. ATIVAN PR [Concomitant]

REACTIONS (1)
  - AMNESIA [None]
